FAERS Safety Report 16535610 (Version 2)
Quarter: 2019Q3

REPORT INFORMATION
  Report Type: Other
  Country: US (occurrence: US)
  Receive Date: 20190705
  Receipt Date: 20190806
  Transmission Date: 20191004
  Serious: Yes (Other)
  Sender: FDA-Public Use
  Company Number: US-MAYNE PHARMA-2019MYN000582

PATIENT

DRUGS (2)
  1. LIOTHYRONINE [Suspect]
     Active Substance: LIOTHYRONINE
     Indication: HYPOTHYROIDISM
     Dosage: UNK
  2. LIOTHYRONINE [Suspect]
     Active Substance: LIOTHYRONINE
     Dosage: UNK

REACTIONS (9)
  - Cardiac failure congestive [Recovering/Resolving]
  - Somnolence [Recovering/Resolving]
  - Cerebral disorder [Recovering/Resolving]
  - Peripheral swelling [Not Recovered/Not Resolved]
  - Hypertension [Unknown]
  - Cellulitis [Recovering/Resolving]
  - Product physical issue [Unknown]
  - Disorientation [Recovering/Resolving]
  - Body temperature decreased [Unknown]
